FAERS Safety Report 18947573 (Version 1)
Quarter: 2021Q1

REPORT INFORMATION
  Report Type: Report from Study
  Country: US (occurrence: US)
  Receive Date: 20210226
  Receipt Date: 20210226
  Transmission Date: 20210420
  Serious: Yes (Hospitalization, Other)
  Sender: FDA-Public Use
  Company Number: US-PFIZER INC-2018480725

PATIENT
  Age: 65 Year
  Sex: Female
  Weight: 125.62 kg

DRUGS (6)
  1. XGEVA [Concomitant]
     Active Substance: DENOSUMAB
     Indication: BREAST CANCER METASTATIC
     Dosage: UNK, CYCLIC
     Dates: start: 20181115
  2. IBRANCE [Suspect]
     Active Substance: PALBOCICLIB
     Indication: BREAST CANCER METASTATIC
     Dosage: 125 MG, CYCLIC (DAILY FOR 21 DAYS ON AND 7 DAYS OFF)
     Route: 048
     Dates: start: 20181025
  3. IBRANCE [Suspect]
     Active Substance: PALBOCICLIB
     Dosage: 125 MG, CYCLIC (DAILY FOR 7 DAYS ON AND 7 DAYS OFF/21 DAYS OF 28 DAY CYCLE/125MG/DAY 21X)
     Route: 048
     Dates: start: 20181113
  4. IBRANCE [Suspect]
     Active Substance: PALBOCICLIB
     Dosage: 125 MG, CYCLIC (DAILY FOR 21 DAYS ON/7 DAYS OFF )
     Route: 048
     Dates: start: 20191025
  5. IBRANCE [Suspect]
     Active Substance: PALBOCICLIB
     Dosage: 125 MG, CYCLIC (DAILY FOR 21 DAYS ON/7 DAYS OFF)
     Route: 048
     Dates: start: 20190129
  6. FASLODEX [Suspect]
     Active Substance: FULVESTRANT
     Indication: BREAST CANCER METASTATIC
     Dosage: UNK
     Route: 030
     Dates: start: 20181115

REACTIONS (41)
  - Inappropriate schedule of product administration [Recovered/Resolved]
  - Dry skin [Not Recovered/Not Resolved]
  - Red blood cell count decreased [Not Recovered/Not Resolved]
  - Taste disorder [Unknown]
  - Abnormal faeces [Unknown]
  - Flatulence [Not Recovered/Not Resolved]
  - Fibrin D dimer increased [Recovered/Resolved]
  - Nasopharyngitis [Unknown]
  - Aphthous ulcer [Recovered/Resolved]
  - Vomiting [Unknown]
  - Product dose omission issue [Unknown]
  - Fatigue [Not Recovered/Not Resolved]
  - White blood cell count decreased [Not Recovered/Not Resolved]
  - Lacrimation increased [Not Recovered/Not Resolved]
  - Diarrhoea [Not Recovered/Not Resolved]
  - Dyspnoea [Not Recovered/Not Resolved]
  - Red blood cell morphology abnormal [Not Recovered/Not Resolved]
  - Rhinorrhoea [Not Recovered/Not Resolved]
  - Oropharyngeal pain [Unknown]
  - Eructation [Not Recovered/Not Resolved]
  - Mood altered [Unknown]
  - Crohn^s disease [Unknown]
  - Painful respiration [Recovered/Resolved]
  - Accidental overdose [Recovered/Resolved]
  - Stomatitis [Unknown]
  - Muscle strain [Not Recovered/Not Resolved]
  - Hypersomnia [Unknown]
  - Weight decreased [Unknown]
  - Clostridium difficile colitis [Unknown]
  - Sinus congestion [Unknown]
  - Constipation [Not Recovered/Not Resolved]
  - Oral herpes [Not Recovered/Not Resolved]
  - Blister [Unknown]
  - Hepatic enzyme increased [Not Recovered/Not Resolved]
  - Thrombosis [Recovered/Resolved]
  - Wrong schedule [Recovered/Resolved]
  - Nausea [Not Recovered/Not Resolved]
  - Abdominal distension [Not Recovered/Not Resolved]
  - Injection site haematoma [Not Recovered/Not Resolved]
  - Nasal dryness [Unknown]
  - Muscle spasms [Not Recovered/Not Resolved]

NARRATIVE: CASE EVENT DATE: 2018
